FAERS Safety Report 26043916 (Version 1)
Quarter: 2025Q4

REPORT INFORMATION
  Report Type: Spontaneous
  Country: EU (occurrence: EU)
  Receive Date: 20251114
  Receipt Date: 20251114
  Transmission Date: 20260118
  Serious: Yes (Hospitalization, Disabling)
  Sender: TEVA
  Company Number: None

PATIENT
  Age: 58 Year
  Sex: Male
  Weight: 95 kg

DRUGS (1)
  1. LEVOFLOXACIN [Suspect]
     Active Substance: LEVOFLOXACIN
     Indication: Pneumonia
     Dosage: 1X1, LEVOFLOXACINE TABLET COATED 500MG / BRAND NAME NOT SPECIFIED
     Route: 048
     Dates: start: 20240110, end: 20240120

REACTIONS (1)
  - Tendon injury [Recovering/Resolving]
